FAERS Safety Report 23653770 (Version 1)
Quarter: 2024Q1

REPORT INFORMATION
  Report Type: Spontaneous
  Country: US (occurrence: None)
  Receive Date: 20240319
  Receipt Date: 20240319
  Transmission Date: 20240410
  Serious: Yes (Death)
  Sender: FDA-Public Use
  Company Number: None

PATIENT
  Age: 81 Year
  Sex: Male

DRUGS (1)
  1. XELODA [Suspect]
     Active Substance: CAPECITABINE
     Indication: Rectal cancer
     Dosage: OTHER FREQUENCY : 14DAYS ON 7 OFF;?
     Dates: start: 20230206

REACTIONS (1)
  - Death [None]

NARRATIVE: CASE EVENT DATE: 20240108
